FAERS Safety Report 19246474 (Version 1)
Quarter: 2021Q2

REPORT INFORMATION
  Report Type: Spontaneous
  Country: JP (occurrence: JP)
  Receive Date: 20210512
  Receipt Date: 20210512
  Transmission Date: 20210717
  Serious: Yes (Other)
  Sender: FDA-Public Use
  Company Number: JP-GLAXOSMITHKLINE-JP2021098700

PATIENT
  Age: 8 Decade
  Sex: Male

DRUGS (3)
  1. CARBOCISTEINE [Concomitant]
     Active Substance: CARBOCYSTEINE
     Dosage: UNK
  2. TRELEGY ELLIPTA [Suspect]
     Active Substance: FLUTICASONE FUROATE\UMECLIDINIUM BROMIDE\VILANTEROL TRIFENATATE
     Indication: CHRONIC OBSTRUCTIVE PULMONARY DISEASE
     Dosage: 100 UG
     Route: 055
     Dates: start: 2020, end: 20210411
  3. TRELEGY ELLIPTA [Suspect]
     Active Substance: FLUTICASONE FUROATE\UMECLIDINIUM BROMIDE\VILANTEROL TRIFENATATE
     Dosage: 200 ?G
     Route: 055
     Dates: start: 20210412

REACTIONS (4)
  - Open angle glaucoma [Unknown]
  - Sputum retention [Unknown]
  - Product use in unapproved indication [Unknown]
  - Vision blurred [Unknown]

NARRATIVE: CASE EVENT DATE: 20210412
